FAERS Safety Report 4552876-5 (Version None)
Quarter: 2005Q1

REPORT INFORMATION
  Report Type: 
  Country: None (occurrence: None)
  Receive Date: 20050114
  Receipt Date: 20050105
  Transmission Date: 20050727
  Serious: Yes (Hospitalization)
  Sender: FDA-Public Use
  Company Number: US-AMGEN-US106075

PATIENT
  Sex: Female

DRUGS (5)
  1. ARANESP [Suspect]
     Indication: ANAEMIA OF MALIGNANT DISEASE
     Route: 058
     Dates: start: 20040901, end: 20041013
  2. NEULASTA [Suspect]
     Indication: CHEMOTHERAPY
     Dates: start: 20041014, end: 20041014
  3. XYOTAX [Suspect]
     Dates: start: 20040618, end: 20041013
  4. CARBOPLATIN [Suspect]
     Dates: start: 20040618, end: 20041013
  5. DURAGESIC [Concomitant]
     Route: 062

REACTIONS (3)
  - CHEST PAIN [None]
  - GOITRE [None]
  - UROGENITAL FISTULA [None]
